FAERS Safety Report 24935235 (Version 1)
Quarter: 2025Q1

REPORT INFORMATION
  Report Type: Spontaneous
  Country: US (occurrence: US)
  Receive Date: 20250206
  Receipt Date: 20250206
  Transmission Date: 20250409
  Serious: Yes (Hospitalization, Other)
  Sender: SPECGX
  Company Number: US-SPECGX-T202500362

PATIENT
  Age: 55 Year
  Sex: Male

DRUGS (2)
  1. ACETAMINOPHEN\HYDROCODONE [Suspect]
     Active Substance: ACETAMINOPHEN\HYDROCODONE
     Indication: Pain
     Route: 065
     Dates: end: 2023
  2. OXYCODONE [Suspect]
     Active Substance: OXYCODONE
     Indication: Pain
     Dosage: 10 MILLIGRAM, TID
     Route: 065
     Dates: start: 202412

REACTIONS (16)
  - Myocardial infarction [Unknown]
  - Oesophagitis [Unknown]
  - Hiatus hernia [Not Recovered/Not Resolved]
  - Syncope [Unknown]
  - Oesophageal polyp [Unknown]
  - Cardiac disorder [Unknown]
  - Joint injury [Unknown]
  - Glucose tolerance impaired [Unknown]
  - Gastric mucosa erythema [Unknown]
  - Ill-defined disorder [Unknown]
  - Illness [Unknown]
  - Injury [Unknown]
  - Nasopharyngitis [Unknown]
  - Tachycardia [Unknown]
  - Hypotension [Unknown]
  - Drug ineffective [Unknown]

NARRATIVE: CASE EVENT DATE: 20240501
